FAERS Safety Report 17376315 (Version 1)
Quarter: 2020Q1

REPORT INFORMATION
  Report Type: Spontaneous
  Country: US (occurrence: US)
  Receive Date: 20200206
  Receipt Date: 20200206
  Transmission Date: 20200409
  Serious: No
  Sender: FDA-Public Use
  Company Number: US-009507513-2002USA000608

PATIENT
  Sex: Female

DRUGS (7)
  1. FORTEO [Suspect]
     Active Substance: TERIPARATIDE
     Dosage: STRENGHT:  600 MCG/2.4 ML,1.50 UNITS AS DIRECTED
     Route: 058
     Dates: start: 20200130
  2. FOLLISTIM AQ [Suspect]
     Active Substance: FOLLITROPIN
  3. METHYLPREDNISOLONE. [Concomitant]
     Active Substance: METHYLPREDNISOLONE
  4. FOLLISTIM AQ [Suspect]
     Active Substance: FOLLITROPIN
     Dosage: UNK
     Dates: start: 20200130
  5. PREVIDENT [Concomitant]
     Active Substance: SODIUM FLUORIDE
  6. OVIDREL [Concomitant]
     Active Substance: CHORIOGONADOTROPIN ALFA
  7. LETROZOLE. [Suspect]
     Active Substance: LETROZOLE

REACTIONS (1)
  - Blepharospasm [Unknown]
